FAERS Safety Report 5105931-5 (Version None)
Quarter: 2006Q3

REPORT INFORMATION
  Report Type: 
  Country: None (occurrence: None)
  Receive Date: 20060915
  Receipt Date: 20060831
  Transmission Date: 20061208
  Serious: Yes (Other)
  Sender: FDA-Public Use
  Company Number: CH-BOEHRINGER INGELHEIM PHARMACEUTICALS, INC.-2006-DE-04609GD

PATIENT
  Age: 26 Year
  Sex: Male

DRUGS (6)
  1. NEVIRAPINE [Suspect]
     Indication: HIV INFECTION CDC CATEGORY C3
  2. FLUCONAZOLE [Suspect]
     Indication: MENINGITIS CRYPTOCOCCAL
  3. FLUCONAZOLE [Suspect]
     Indication: PROPHYLAXIS
  4. LAMIVUDINE [Suspect]
     Indication: HIV INFECTION CDC CATEGORY C3
  5. DIDANOSINE [Suspect]
     Indication: HIV INFECTION CDC CATEGORY C3
  6. TRIMETHOPRIM + SULFAMETHOXAZOLE [Concomitant]
     Indication: ANTIBIOTIC PROPHYLAXIS

REACTIONS (7)
  - CRYPTOCOCCOSIS [None]
  - DISEASE RECURRENCE [None]
  - DRUG INEFFECTIVE [None]
  - IMMUNE RECONSTITUTION SYNDROME [None]
  - LYMPHADENOPATHY [None]
  - PAIN [None]
  - SUDDEN HEARING LOSS [None]
